FAERS Safety Report 16219704 (Version 1)
Quarter: 2019Q2

REPORT INFORMATION
  Report Type: Spontaneous
  Country: US (occurrence: US)
  Receive Date: 20190420
  Receipt Date: 20190420
  Transmission Date: 20190711
  Serious: Yes (Other)
  Sender: FDA-Public Use
  Company Number: US-JNJFOC-20190409683

PATIENT

DRUGS (1)
  1. XARELTO [Suspect]
     Active Substance: RIVAROXABAN
     Indication: SEIZURE
     Route: 048
     Dates: start: 20180501, end: 20180601

REACTIONS (4)
  - Haemorrhagic stroke [Unknown]
  - Off label use [Unknown]
  - Rectal haemorrhage [Unknown]
  - Product use in unapproved indication [Unknown]

NARRATIVE: CASE EVENT DATE: 20180501
